FAERS Safety Report 16539681 (Version 1)
Quarter: 2019Q3

REPORT INFORMATION
  Report Type: Spontaneous
  Country: US (occurrence: US)
  Receive Date: 20190705
  Receipt Date: 20190705
  Transmission Date: 20191004
  Serious: Yes (Other)
  Sender: FDA-Public Use
  Company Number: None

PATIENT
  Age: 79 Year
  Sex: Female
  Weight: 80.64 kg

DRUGS (14)
  1. AFINITOR [Suspect]
     Active Substance: EVEROLIMUS
     Indication: BREAST CANCER FEMALE
     Route: 048
     Dates: start: 20190418, end: 20190705
  2. SOTALOL. [Concomitant]
     Active Substance: SOTALOL
  3. QUETIAPINE. [Concomitant]
     Active Substance: QUETIAPINE
  4. PANTOPRAZOLE [Concomitant]
     Active Substance: PANTOPRAZOLE
  5. ESCITALOPRAM [Concomitant]
     Active Substance: ESCITALOPRAM OXALATE
  6. HYDROXYUREA. [Concomitant]
     Active Substance: HYDROXYUREA
  7. TRIAMTERENE-HCTZ [Concomitant]
     Active Substance: HYDROCHLOROTHIAZIDE\TRIAMTERENE
  8. METOPROLOL. [Concomitant]
     Active Substance: METOPROLOL
  9. TRAZODONE [Concomitant]
     Active Substance: TRAZODONE HYDROCHLORIDE
  10. MAXVISION [Concomitant]
  11. ASPIRIN. [Concomitant]
     Active Substance: ASPIRIN
  12. CALCIUM 600 [Concomitant]
     Active Substance: CALCIUM
  13. DONEPEZIL. [Concomitant]
     Active Substance: DONEPEZIL
  14. LOSARTAN. [Concomitant]
     Active Substance: LOSARTAN

REACTIONS (1)
  - Dementia [None]

NARRATIVE: CASE EVENT DATE: 20190705
